FAERS Safety Report 6501993-9 (Version None)
Quarter: 2009Q4

REPORT INFORMATION
  Report Type: 
  Country: None (occurrence: None)
  Receive Date: 20091204
  Receipt Date: 20091124
  Transmission Date: 20100525
  Serious: Yes (Death, Other)
  Sender: FDA-Public Use
  Company Number: AECAN200900323

PATIENT
  Age: 65 Year
  Sex: Male

DRUGS (1)
  1. IGIVNEX [Suspect]
     Indication: POLYMYOSITIS
     Dosage: QD;IV
     Route: 042
     Dates: start: 20091029, end: 20091031

REACTIONS (6)
  - ACUTE RESPIRATORY DISTRESS SYNDROME [None]
  - DEVICE RELATED INFECTION [None]
  - ENTEROCOCCAL INFECTION [None]
  - FLUID OVERLOAD [None]
  - PULMONARY HYPERTENSION [None]
  - RESPIRATORY FAILURE [None]
